FAERS Safety Report 8048641-7 (Version None)
Quarter: 2011Q4

REPORT INFORMATION
  Report Type: 
  Country: None (occurrence: None)
  Receive Date: 20111209
  Receipt Date: 20111018
  Transmission Date: 20120403
  Serious: No
  Sender: FDA-Public Use
  Company Number: 2011SP049200

PATIENT
  Age: 55 Year
  Sex: Female
  Weight: 65.77 kg

DRUGS (7)
  1. RIBAVIRIN [Suspect]
     Indication: PRODUCT USED FOR UNKNOWN INDICATION
     Dosage: SEE CONT PAGE
  2. IRON [Concomitant]
  3. VICTRELIS [Suspect]
     Indication: HEPATITIS C
     Dosage: 800 MG; QID;PO
     Route: 048
     Dates: start: 20110902
  4. VITAMIN C /00008001/ [Concomitant]
  5. CALCIUM [Concomitant]
  6. MULTI-VITAMINS [Concomitant]
  7. PEG-INTRON [Suspect]
     Indication: PRODUCT USED FOR UNKNOWN INDICATION
     Dosage: SEE CONT PAGE

REACTIONS (6)
  - WEIGHT DECREASED [None]
  - DYSGEUSIA [None]
  - DECREASED APPETITE [None]
  - RASH [None]
  - FATIGUE [None]
  - WHITE BLOOD CELL COUNT DECREASED [None]
